FAERS Safety Report 12750762 (Version 2)
Quarter: 2016Q3

REPORT INFORMATION
  Report Type: Spontaneous
  Country: US (occurrence: US)
  Receive Date: 20160916
  Receipt Date: 20160926
  Transmission Date: 20161109
  Serious: No
  Sender: FDA-Public Use
  Company Number: US-ASTRAZENECA-2016SE97502

PATIENT
  Sex: Female

DRUGS (7)
  1. ZESTRIL [Interacting]
     Active Substance: LISINOPRIL
     Indication: PRODUCT USED FOR UNKNOWN INDICATION
     Dosage: PRINIVIL
     Route: 048
     Dates: start: 1991, end: 1995
  2. ZESTRIL [Interacting]
     Active Substance: LISINOPRIL
     Indication: PRODUCT USED FOR UNKNOWN INDICATION
     Route: 048
     Dates: start: 1997, end: 1998
  3. TOPROL XL [Interacting]
     Active Substance: METOPROLOL SUCCINATE
     Dosage: 50.0MG UNKNOWN
     Route: 048
     Dates: start: 1996, end: 1997
  4. HCT [Concomitant]
     Active Substance: HYDROCHLOROTHIAZIDE
  5. TOPROL XL [Suspect]
     Active Substance: METOPROLOL SUCCINATE
     Dosage: 150.0MG UNKNOWN
     Route: 048
     Dates: start: 1995
  6. DIOVAN [Concomitant]
     Active Substance: VALSARTAN
     Indication: BLOOD PRESSURE ABNORMAL
  7. IBUPROFEN. [Concomitant]
     Active Substance: IBUPROFEN
     Indication: BURSITIS

REACTIONS (5)
  - Pain [Unknown]
  - Drug ineffective [Unknown]
  - Abasia [Unknown]
  - Drug interaction [Unknown]
  - Heart rate decreased [Unknown]
